FAERS Safety Report 10089868 (Version 1)
Quarter: 2014Q2

REPORT INFORMATION
  Report Type: Report from Study
  Country: US (occurrence: US)
  Receive Date: 20140421
  Receipt Date: 20140421
  Transmission Date: 20141212
  Serious: No
  Sender: FDA-Public Use
  Company Number: US-ABBVIE-14P-163-1209096-00

PATIENT
  Age: 9 Year
  Sex: Male

DRUGS (3)
  1. LUPRON DEPOT-PED (3 MONTH) [Suspect]
     Indication: PRECOCIOUS PUBERTY
     Dates: start: 20130127
  2. LAMICTAL [Concomitant]
     Indication: PRODUCT USED FOR UNKNOWN INDICATION
     Route: 048
  3. HOMEOPATICS NOS [Concomitant]
     Indication: PRODUCT USED FOR UNKNOWN INDICATION

REACTIONS (1)
  - Aggression [Not Recovered/Not Resolved]
